FAERS Safety Report 8548165-4 (Version None)
Quarter: 2012Q3

REPORT INFORMATION
  Report Type: 
  Country: None (occurrence: None)
  Receive Date: 20120730
  Receipt Date: 20120718
  Transmission Date: 20120928
  Serious: Yes (Other)
  Sender: FDA-Public Use
  Company Number: US-BIOGENIDEC-2011BI036165

PATIENT
  Age: 62 Year
  Sex: Female

DRUGS (3)
  1. AVONEX [Suspect]
     Indication: MULTIPLE SCLEROSIS
     Route: 030
     Dates: start: 20110622, end: 20110715
  2. INSULIN (NOS) [Concomitant]
     Indication: DIABETES MELLITUS
  3. STEROID [Concomitant]
     Indication: ARTHRALGIA

REACTIONS (3)
  - FEELING COLD [None]
  - FLUSHING [None]
  - PYREXIA [None]
